FAERS Safety Report 5655001-2 (Version None)
Quarter: 2008Q1

REPORT INFORMATION
  Report Type: 
  Country: None (occurrence: None)
  Receive Date: 20080219
  Receipt Date: 20071105
  Transmission Date: 20080703
  Serious: No
  Sender: FDA-Public Use
  Company Number: WAES 0711USA00830

PATIENT
  Age: 66 Year
  Sex: Female

DRUGS (14)
  1. JANUVIA [Suspect]
     Indication: TYPE 2 DIABETES MELLITUS
     Dosage: 100 MG/DAILY/PO
     Route: 048
     Dates: start: 20070701, end: 20070802
  2. JANUVIA [Suspect]
     Indication: TYPE 2 DIABETES MELLITUS
     Dosage: 100 MG/DAILY/PO
     Route: 048
     Dates: start: 20070808, end: 20070808
  3. ACTOS [Concomitant]
  4. CRESTOR [Concomitant]
  5. DIGITEK [Concomitant]
  6. LOPRESSOR [Concomitant]
  7. NORVASC [Concomitant]
  8. CALCIUM (UNSPECIFIED) [Concomitant]
  9. CYANOCOBALAMIN [Concomitant]
  10. ESTRADIOL [Concomitant]
  11. GLIPIZIDE [Concomitant]
  12. LISINOPRIL [Concomitant]
  13. METFORMIN [Concomitant]
  14. THYROID TAB [Concomitant]

REACTIONS (4)
  - RASH [None]
  - RASH ERYTHEMATOUS [None]
  - RASH PAPULAR [None]
  - RASH PRURITIC [None]
